FAERS Safety Report 12119322 (Version 4)
Quarter: 2016Q1

REPORT INFORMATION
  Report Type: Spontaneous
  Country: IT (occurrence: IT)
  Receive Date: 20160226
  Receipt Date: 20160330
  Transmission Date: 20160526
  Serious: Yes (Hospitalization, Other)
  Sender: FDA-Public Use
  Company Number: IT-JNJFOC-20160202021

PATIENT
  Age: 47 Year
  Sex: Female

DRUGS (2)
  1. CAELYX [Suspect]
     Active Substance: DOXORUBICIN HYDROCHLORIDE
     Indication: OVARIAN CANCER METASTATIC
     Route: 042
     Dates: start: 20151126, end: 20151126
  2. YONDELIS [Suspect]
     Active Substance: TRABECTEDIN
     Indication: OVARIAN CANCER METASTATIC
     Dosage: TOTAL DOSE
     Route: 042
     Dates: start: 20151126, end: 20151126

REACTIONS (7)
  - Malaise [Recovered/Resolved]
  - Abdominal pain [Recovered/Resolved]
  - Nausea [Unknown]
  - Blood bilirubin increased [Recovered/Resolved]
  - Fatigue [Unknown]
  - Liver function test abnormal [Recovered/Resolved]
  - Vomiting [Unknown]

NARRATIVE: CASE EVENT DATE: 20151220
